FAERS Safety Report 8120002-1 (Version None)
Quarter: 2012Q1

REPORT INFORMATION
  Report Type: 
  Country: None (occurrence: None)
  Receive Date: 20120206
  Receipt Date: 20120206
  Transmission Date: 20120608
  Serious: Yes (Other)
  Sender: FDA-Public Use
  Company Number: None

PATIENT
  Age: 84 Year
  Sex: Female
  Weight: 61.2356 kg

DRUGS (1)
  1. CITALOPRAM HYDROBROMIDE [Suspect]
     Dosage: 20 MG 1 A DAY  I ONLY TOOK 5
     Dates: start: 20111114

REACTIONS (1)
  - HYPOTRICHOSIS [None]
